FAERS Safety Report 25683471 (Version 1)
Quarter: 2025Q3

REPORT INFORMATION
  Report Type: Spontaneous
  Country: US (occurrence: US)
  Receive Date: 20250814
  Receipt Date: 20250814
  Transmission Date: 20251021
  Serious: No
  Sender: SANOFI AVENTIS
  Company Number: US-SA-2025SA236434

PATIENT
  Sex: Female

DRUGS (10)
  1. DUPIXENT [Suspect]
     Active Substance: DUPILUMAB
     Indication: Asthma
     Dosage: 300 MG, QOW
     Route: 058
     Dates: start: 20210506
  2. ALBUTEROL [Concomitant]
     Active Substance: ALBUTEROL
  3. BREO ELLIPTA [Concomitant]
     Active Substance: FLUTICASONE FUROATE\VILANTEROL TRIFENATATE
  4. EPINEPHRINE [Concomitant]
     Active Substance: EPINEPHRINE
  5. HYDROXYZINE HYDROCHLORIDE [Concomitant]
     Active Substance: HYDROXYZINE HYDROCHLORIDE
  6. JUNEL FE 1/20 [Concomitant]
     Active Substance: ETHINYL ESTRADIOL\NORETHINDRONE ACETATE
  7. AZELASTINE [Concomitant]
     Active Substance: AZELASTINE
  8. DULOXETINE [Concomitant]
     Active Substance: DULOXETINE
  9. AZELASTINE [Concomitant]
     Active Substance: AZELASTINE
  10. HYDROXYZINE PAMOATE [Concomitant]
     Active Substance: HYDROXYZINE PAMOATE

REACTIONS (3)
  - Impaired quality of life [Unknown]
  - Injection site reaction [Unknown]
  - Product dose omission in error [Unknown]
